FAERS Safety Report 4962546-7 (Version None)
Quarter: 2006Q1

REPORT INFORMATION
  Report Type: 
  Country: None (occurrence: None)
  Receive Date: 20060201
  Receipt Date: 20051111
  Transmission Date: 20060701
  Serious: No
  Sender: FDA-Public Use
  Company Number: 2005PV004405

PATIENT
  Age: 79 Year
  Sex: Male
  Weight: 113.3993 kg

DRUGS (9)
  1. BYETTA [Suspect]
     Indication: DIABETES MELLITUS NON-INSULIN-DEPENDENT
     Dosage: 5 MCG; UNKNOWN; SC
     Route: 058
     Dates: start: 20051108
  2. GLUCOVANCE [Concomitant]
  3. LIPITOR [Concomitant]
  4. ALTACE [Concomitant]
  5. SYNTHROID [Concomitant]
  6. NORVASC [Concomitant]
  7. COREG [Concomitant]
  8. COUMADIN [Concomitant]
  9. LASIX [Concomitant]

REACTIONS (6)
  - ABDOMINAL DISTENSION [None]
  - CONDITION AGGRAVATED [None]
  - DYSPNOEA EXACERBATED [None]
  - HEART RATE IRREGULAR [None]
  - HYPOVENTILATION [None]
  - NAUSEA [None]
